FAERS Safety Report 18668926 (Version 1)
Quarter: 2020Q4

REPORT INFORMATION
  Report Type: Spontaneous
  Country: US (occurrence: US)
  Receive Date: 20201226
  Receipt Date: 20201226
  Transmission Date: 20210114
  Serious: Yes (Hospitalization)
  Sender: FDA-Public Use
  Company Number: None

PATIENT
  Age: 41 Year
  Sex: Male

DRUGS (1)
  1. VOSEVI [Suspect]
     Active Substance: SOFOSBUVIR\VELPATASVIR\VOXILAPREVIR
     Dosage: ?          OTHER DOSE:400-100-100MG;?
     Route: 048
     Dates: start: 202010

REACTIONS (3)
  - Gastric ulcer haemorrhage [None]
  - Hypophagia [None]
  - Therapy interrupted [None]

NARRATIVE: CASE EVENT DATE: 20201201
